FAERS Safety Report 25573918 (Version 4)
Quarter: 2025Q3

REPORT INFORMATION
  Report Type: Report from Study
  Country: US (occurrence: US)
  Receive Date: 20250717
  Receipt Date: 20250812
  Transmission Date: 20251021
  Serious: Yes (Hospitalization, Other)
  Sender: ABBVIE
  Company Number: US-ABBVIE-6372306

PATIENT
  Age: 55 Year
  Sex: Male

DRUGS (1)
  1. RINVOQ [Suspect]
     Active Substance: UPADACITINIB
     Indication: Dermatitis atopic
     Dosage: 15 MILLIGRAM
     Route: 048
     Dates: start: 2023, end: 202503

REACTIONS (7)
  - Squamous cell carcinoma [Recovered/Resolved]
  - Gait disturbance [Unknown]
  - Skin infection [Unknown]
  - Erythema [Unknown]
  - Skin laceration [Unknown]
  - Suture rupture [Unknown]
  - Post procedural oedema [Unknown]

NARRATIVE: CASE EVENT DATE: 20230901
